FAERS Safety Report 7964726-5 (Version None)
Quarter: 2011Q4

REPORT INFORMATION
  Report Type: 
  Country: None (occurrence: None)
  Receive Date: 20111208
  Receipt Date: 20111128
  Transmission Date: 20120403
  Serious: Yes (Other)
  Sender: FDA-Public Use
  Company Number: US-ELI_LILLY_AND_COMPANY-US201111008971

PATIENT
  Sex: Female

DRUGS (13)
  1. METFORMIN HCL [Concomitant]
  2. LISINOPRIL [Concomitant]
     Dosage: UNK, UNKNOWN
     Dates: end: 20110922
  3. VYTORIN [Concomitant]
  4. INDERAL [Concomitant]
     Indication: ARRHYTHMIA
     Dosage: UNK, PRN
  5. ZANTAC [Concomitant]
     Dosage: 300 MG, EACH EVENING
  6. LISINOPRIL [Concomitant]
     Dosage: UNK, UNKNOWN
  7. METAXALONE [Concomitant]
     Dosage: 1 DF, EACH EVENING
  8. METAXALONE [Concomitant]
     Dosage: UNK, UNKNOWN
  9. COLACE [Concomitant]
     Dosage: UNK, PRN
  10. MILK OF MAGNESIUM [Concomitant]
  11. CYMBALTA [Suspect]
     Indication: MUSCULOSKELETAL PAIN
     Dosage: 30 MG, QD
     Dates: start: 20110916, end: 20111030
  12. LISINOPRIL [Concomitant]
     Dosage: UNK, UNKNOWN
     Dates: start: 20110916
  13. ZANTAC [Concomitant]
     Indication: GASTROOESOPHAGEAL REFLUX DISEASE
     Dosage: 150 MG, EACH MORNING

REACTIONS (5)
  - HYPERTENSION [None]
  - VENTRICULAR EXTRASYSTOLES [None]
  - ARRHYTHMIA [None]
  - CONSTIPATION [None]
  - ALOPECIA [None]
